FAERS Safety Report 20108995 (Version 3)
Quarter: 2022Q1

REPORT INFORMATION
  Report Type: Report from Study
  Country: CN (occurrence: CN)
  Receive Date: 20211124
  Receipt Date: 20220303
  Transmission Date: 20220424
  Serious: Yes (Hospitalization)
  Sender: FDA-Public Use
  Company Number: CN-002147023-NVSC2021CN262026

PATIENT

DRUGS (3)
  1. RUXOLITINIB [Suspect]
     Active Substance: RUXOLITINIB
     Indication: Myelofibrosis
     Dosage: UNK
     Route: 048
     Dates: start: 2016
  2. RUXOLITINIB [Suspect]
     Active Substance: RUXOLITINIB
     Dosage: 2 DF, BID (ABOUT AT THE END OF 2018 OR 2019
     Route: 048
     Dates: end: 2019
  3. RUXOLITINIB [Suspect]
     Active Substance: RUXOLITINIB
     Dosage: 4 DF, BID
     Route: 048
     Dates: start: 2019

REACTIONS (5)
  - Pruritus [Not Recovered/Not Resolved]
  - Blood test abnormal [Recovering/Resolving]
  - Asthenia [Recovering/Resolving]
  - Decreased appetite [Recovering/Resolving]
  - Regurgitation [Recovering/Resolving]

NARRATIVE: CASE EVENT DATE: 20160101
